FAERS Safety Report 8560117-7 (Version None)
Quarter: 2012Q3

REPORT INFORMATION
  Report Type: 
  Country: None (occurrence: None)
  Receive Date: 20120802
  Receipt Date: 20120723
  Transmission Date: 20120928
  Serious: Yes (Disabling)
  Sender: FDA-Public Use
  Company Number: GB-FRI-1000037517

PATIENT
  Age: 59 Year
  Sex: Male

DRUGS (3)
  1. CITALOPRAM HYDROBROMIDE [Suspect]
     Dosage: LATTERLY IN HIGH DOSES
     Route: 048
  2. OMEPRAZOLE [Suspect]
  3. LORAZEPAM [Suspect]
     Dosage: LATTERLY IN HIGH DOSES

REACTIONS (1)
  - HOMICIDE [None]
